FAERS Safety Report 10196834 (Version 2)
Quarter: 2014Q2

REPORT INFORMATION
  Report Type: Spontaneous
  Country: GB (occurrence: None)
  Receive Date: 20140522
  Receipt Date: 20140528
  Transmission Date: 20141212
  Serious: Yes (Other)
  Sender: FDA-Public Use
  Company Number: AUR-APL-2014-05959

PATIENT
  Age: 23 Year
  Sex: Female
  Weight: 46 kg

DRUGS (5)
  1. MIRTAZAPINE [Suspect]
     Indication: JOINT HYPEREXTENSION
     Route: 048
     Dates: start: 20111028, end: 20140508
  2. NORTRIPTYLINE [Suspect]
     Indication: POOR QUALITY SLEEP
     Route: 048
     Dates: start: 20121004
  3. PREGABALIN [Suspect]
     Indication: JOINT HYPEREXTENSION
     Route: 048
     Dates: start: 20111104, end: 20140508
  4. DICLOFENAC (DICLOFENAC) [Concomitant]
  5. PARACETAMOL (PARACETAMOL) [Concomitant]

REACTIONS (3)
  - Abortion spontaneous [None]
  - Maternal exposure during pregnancy [None]
  - Pregnancy [None]
